FAERS Safety Report 5647729-5 (Version None)
Quarter: 2008Q1

REPORT INFORMATION
  Report Type: 
  Country: None (occurrence: None)
  Receive Date: 20080303
  Receipt Date: 20080226
  Transmission Date: 20080703
  Serious: Yes (Death)
  Sender: FDA-Public Use
  Company Number: MW-GILEAD-2008-0014966

PATIENT
  Sex: Male
  Weight: 35.2 kg

DRUGS (7)
  1. EMTRICITABINE/TENOFOVIR DISOPROXIL FUMARATE [Suspect]
     Indication: HIV INFECTION
     Dosage: 200/300 MG
     Route: 048
     Dates: start: 20071213, end: 20080101
  2. EFAVIRENZ [Suspect]
     Indication: HIV INFECTION
     Route: 048
     Dates: start: 20071213, end: 20080101
  3. FLUCONAZOLE [Concomitant]
     Indication: OESOPHAGEAL CANDIDIASIS
     Route: 048
     Dates: start: 20071206
  4. FEFOL [Concomitant]
     Dosage: NI
     Route: 065
     Dates: start: 20071206
  5. COTRIMOXAZOLE [Concomitant]
     Route: 065
     Dates: start: 20071206
  6. OMEPRAZOLE [Concomitant]
     Indication: VOMITING
     Route: 065
     Dates: start: 20071206
  7. VITAMIN B [Concomitant]
     Indication: VOMITING
     Route: 065
     Dates: start: 20071206

REACTIONS (2)
  - DEATH [None]
  - PULMONARY TUBERCULOSIS [None]
